FAERS Safety Report 8605373-1 (Version None)
Quarter: 2012Q3

REPORT INFORMATION
  Report Type: 
  Country: None (occurrence: None)
  Receive Date: 20120820
  Receipt Date: 20120629
  Transmission Date: 20120928
  Serious: Yes (Hospitalization)
  Sender: FDA-Public Use
  Company Number: JP-009507513-1208JPN007371

PATIENT

DRUGS (8)
  1. PROHEPARUM [Concomitant]
     Indication: HEPATITIS C
     Route: 048
     Dates: end: 20120424
  2. REBETOL [Suspect]
     Indication: HEPATITIS C
     Route: 048
     Dates: start: 20120307, end: 20120322
  3. REBETOL [Suspect]
     Route: 048
     Dates: start: 20120522, end: 20120525
  4. PEG-INTRON [Suspect]
     Indication: HEPATITIS C
     Dosage: 1.3MCG/KG/WEEK
     Route: 058
     Dates: start: 20120307
  5. PEG-INTRON [Suspect]
     Dosage: 1.5MCG/KG/WEEK
     Route: 058
  6. TELAVIC [Suspect]
     Indication: HEPATITIS C
     Route: 048
     Dates: start: 20120307, end: 20120514
  7. URSO 250 [Concomitant]
     Indication: HEPATITIS C
     Route: 048
     Dates: end: 20120424
  8. REBETOL [Suspect]
     Route: 048
     Dates: start: 20120323, end: 20120521

REACTIONS (1)
  - RENAL IMPAIRMENT [None]
